FAERS Safety Report 7705661-7 (Version None)
Quarter: 2011Q3

REPORT INFORMATION
  Report Type: 
  Country: None (occurrence: None)
  Receive Date: 20110823
  Receipt Date: 20110823
  Transmission Date: 20111222
  Serious: Yes (Hospitalization)
  Sender: FDA-Public Use
  Company Number: None

PATIENT
  Sex: Female
  Weight: 70.3 kg

DRUGS (1)
  1. PRADAXA [Suspect]
     Indication: ATRIAL FIBRILLATION
     Dosage: 150MG BID PO
     Route: 048
     Dates: start: 20110501, end: 20110627

REACTIONS (12)
  - MUSCULOSKELETAL PAIN [None]
  - BLOOD LACTIC ACID INCREASED [None]
  - ABASIA [None]
  - HAEMOGLOBIN DECREASED [None]
  - MUSCLE HAEMORRHAGE [None]
  - RENAL IMPAIRMENT [None]
  - PAIN IN EXTREMITY [None]
  - DISSEMINATED INTRAVASCULAR COAGULATION [None]
  - ATRIAL FIBRILLATION [None]
  - SEPSIS [None]
  - BLOOD CREATININE INCREASED [None]
  - ASTHENIA [None]
